FAERS Safety Report 10184397 (Version 2)
Quarter: 2014Q2

REPORT INFORMATION
  Report Type: Spontaneous
  Country: IT (occurrence: IT)
  Receive Date: 20140521
  Receipt Date: 20140610
  Transmission Date: 20141212
  Serious: Yes (Other)
  Sender: FDA-Public Use
  Company Number: IT-ROCHE-1404401

PATIENT
  Age: 63 Year
  Sex: Male
  Weight: 80 kg

DRUGS (5)
  1. AVASTIN [Suspect]
     Indication: COLON CANCER METASTATIC
     Route: 042
     Dates: start: 20130621, end: 20131122
  2. OXALIPLATIN [Suspect]
     Indication: COLON CANCER METASTATIC
     Route: 040
     Dates: start: 20130621, end: 20131122
  3. 5-FLUOROURACIL [Suspect]
     Indication: COLON CANCER METASTATIC
     Route: 040
     Dates: start: 20130621, end: 20131122
  4. 5-FLUOROURACIL [Suspect]
     Route: 041
     Dates: start: 20130621, end: 20131122
  5. LEVOFOLINIC ACID [Concomitant]
     Route: 042
     Dates: start: 20130621, end: 20131122

REACTIONS (1)
  - Anaemia [Recovering/Resolving]
